FAERS Safety Report 5280325-0 (Version None)
Quarter: 2007Q1

REPORT INFORMATION
  Report Type: 
  Country: None (occurrence: None)
  Receive Date: 20070329
  Receipt Date: 20070321
  Transmission Date: 20070707
  Serious: Yes (Life-Threatening, Hospitalization, Disabling)
  Sender: FDA-Public Use
  Company Number: GB-ELI_LILLY_AND_COMPANY-GB200703004480

PATIENT
  Age: 52 Year
  Sex: Female
  Weight: 60 kg

DRUGS (5)
  1. ZYPREXA [Suspect]
     Indication: SCHIZOPHRENIA
     Dosage: 400 MG, UNK
     Route: 048
     Dates: start: 20061018, end: 20061203
  2. ZYPREXA [Suspect]
     Dosage: 5.2 MG, DAILY (1/D)
     Route: 048
     Dates: start: 20031207, end: 20061013
  3. CLOPIXOL (DECANOATE) [Concomitant]
     Indication: SCHIZOPHRENIA
     Dosage: 100 MG, UNK
     Route: 030
     Dates: end: 20060202
  4. FLUOXETINE HCL [Concomitant]
     Indication: DEPRESSION
     Dosage: 20 MG, DAILY (1/D)
     Route: 048
     Dates: start: 20040329, end: 20061203
  5. RISPERDAL [Concomitant]
     Indication: SCHIZOPHRENIA
     Dosage: 3 MG, 2/D
     Route: 048
     Dates: start: 20060801, end: 20061013

REACTIONS (3)
  - HEPATIC ENCEPHALOPATHY [None]
  - HEPATIC FAILURE [None]
  - HEPATITIS [None]
